FAERS Safety Report 22183011 (Version 1)
Quarter: 2023Q2

REPORT INFORMATION
  Report Type: Spontaneous
  Country: JP (occurrence: JP)
  Receive Date: 20230406
  Receipt Date: 20230406
  Transmission Date: 20230722
  Serious: Yes (Hospitalization, Other)
  Sender: FDA-Public Use
  Company Number: JP-ferring-EVA202300354FERRINGPH

PATIENT

DRUGS (2)
  1. DESMOPRESSIN ACETATE [Suspect]
     Active Substance: DESMOPRESSIN ACETATE
     Indication: Diabetes insipidus
     Dosage: 120 UG, 2 TIMES DAILY (ONE TABLET TWICE A DAY)
     Route: 065
     Dates: end: 20230331
  2. DESMOPRESSIN ACETATE [Suspect]
     Active Substance: DESMOPRESSIN ACETATE
     Dosage: 120 UG, 1 TIME DAILY (ONE TABLET BEFORE BEDTIME)
     Route: 065
     Dates: start: 201808

REACTIONS (5)
  - Bacterial pyelonephritis [Unknown]
  - Renal impairment [Unknown]
  - Urinary tract infection [Unknown]
  - Contraindicated product administered [Recovered/Resolved]
  - Labelled drug-disease interaction medication error [Recovered/Resolved]

NARRATIVE: CASE EVENT DATE: 20220501
